FAERS Safety Report 5634009-7 (Version None)
Quarter: 2008Q1

REPORT INFORMATION
  Report Type: 
  Country: None (occurrence: None)
  Receive Date: 20080221
  Receipt Date: 20080213
  Transmission Date: 20080703
  Serious: Yes (Other)
  Sender: FDA-Public Use
  Company Number: US-GENENTECH-252861

PATIENT
  Sex: Female

DRUGS (6)
  1. BEVACIZUMAB [Suspect]
     Indication: METASTATIC RENAL CELL CARCINOMA
     Dosage: 10 MG/KG, Q2W
     Route: 042
     Dates: start: 20070628, end: 20071108
  2. SUTENT [Suspect]
     Indication: METASTATIC RENAL CELL CARCINOMA
     Dosage: 50 MG, QD
     Route: 048
     Dates: start: 20070629, end: 20071112
  3. SUTENT [Suspect]
     Dosage: 37.5 MG, QD
     Dates: start: 20070928, end: 20071019
  4. SUTENT [Suspect]
     Dosage: 25 MG, UNK
     Dates: start: 20071109, end: 20071113
  5. NORVASC [Concomitant]
     Indication: HYPERTENSION
  6. LANSOPRAZOLE [Concomitant]
     Indication: HYPERTENSION

REACTIONS (2)
  - MICROANGIOPATHIC HAEMOLYTIC ANAEMIA [None]
  - THROMBOTIC MICROANGIOPATHY [None]
